FAERS Safety Report 9094684 (Version 2)
Quarter: 2014Q1

REPORT INFORMATION
  Report Type: Spontaneous
  Country: US (occurrence: US)
  Receive Date: 20130219
  Receipt Date: 20140217
  Transmission Date: 20141002
  Serious: Yes (Hospitalization, Disabling, Other)
  Sender: FDA-Public Use
  Company Number: US-009507513-1302USA006741

PATIENT
  Sex: Female
  Weight: 58.96 kg

DRUGS (1)
  1. NUVARING [Suspect]
     Indication: CONTRACEPTION
     Dosage: UNK
     Route: 067
     Dates: start: 20111117, end: 20120430

REACTIONS (9)
  - Thrombolysis [Unknown]
  - Angioplasty [Unknown]
  - Abortion spontaneous [Recovered/Resolved]
  - Pulmonary embolism [Unknown]
  - Deep vein thrombosis [Recovering/Resolving]
  - Coagulopathy [Unknown]
  - Emotional disorder [Unknown]
  - Varicose vein [Unknown]
  - Maternal exposure before pregnancy [Recovered/Resolved]
